FAERS Safety Report 4478015-7 (Version None)
Quarter: 2004Q3

REPORT INFORMATION
  Report Type: 
  Country: None (occurrence: None)
  Receive Date: 20040923
  Receipt Date: 20040803
  Transmission Date: 20050211
  Serious: No
  Sender: FDA-Public Use
  Company Number: USA040874401

PATIENT
  Age: 76 Year
  Sex: Female
  Weight: 45 kg

DRUGS (6)
  1. FORTEO [Suspect]
     Indication: OSTEOPOROSIS
     Dosage: 20 UG/1 DAY
     Dates: start: 20030501
  2. SYNTHROID [Concomitant]
  3. EFFEXOR XR [Concomitant]
  4. CALCIUM [Concomitant]
  5. MAGNESIUM [Concomitant]
  6. VITAMIN D [Concomitant]

REACTIONS (2)
  - BONE PAIN [None]
  - MYALGIA [None]
